FAERS Safety Report 10371050 (Version 1)
Quarter: 2014Q3

REPORT INFORMATION
  Report Type: Report from Study
  Country: ES (occurrence: ES)
  Receive Date: 20140808
  Receipt Date: 20140808
  Transmission Date: 20150326
  Serious: Yes (Other)
  Sender: FDA-Public Use
  Company Number: ES-009507513-1408ESP001416

PATIENT
  Age: 66 Year
  Sex: Male

DRUGS (6)
  1. IMIPENEM AND CILASTATIN [Suspect]
     Active Substance: CILASTATIN SODIUM\IMIPENEM
     Indication: BACTERAEMIA
     Dosage: 1 G/6H
     Route: 042
  2. FOSFOMYCIN [Suspect]
     Active Substance: FOSFOMYCIN
     Indication: ENDOCARDITIS BACTERIAL
  3. VANCOMYCIN [Suspect]
     Active Substance: VANCOMYCIN
     Indication: ENDOCARDITIS BACTERIAL
  4. FOSFOMYCIN [Suspect]
     Active Substance: FOSFOMYCIN
     Indication: BACTERAEMIA
     Dosage: 2 G/6H
     Route: 042
  5. VANCOMYCIN [Suspect]
     Active Substance: VANCOMYCIN
     Indication: BACTERAEMIA
  6. IMIPENEM AND CILASTATIN [Suspect]
     Active Substance: CILASTATIN SODIUM\IMIPENEM
     Indication: ENDOCARDITIS BACTERIAL

REACTIONS (1)
  - Hypernatraemia [Unknown]
